FAERS Safety Report 4649772-1 (Version None)
Quarter: 2005Q2

REPORT INFORMATION
  Report Type: 
  Country: None (occurrence: None)
  Receive Date: 20050428
  Receipt Date: 20050412
  Transmission Date: 20051028
  Serious: No
  Sender: FDA-Public Use
  Company Number: 200511085GDS

PATIENT
  Age: 63 Year
  Sex: Female

DRUGS (1)
  1. PROFLOX (MOXIFLOXACIN) [Suspect]
     Indication: BRONCHIAL INFECTION
     Dosage: ORAL
     Route: 048
     Dates: start: 20050306

REACTIONS (1)
  - TONGUE BLACK HAIRY [None]
